FAERS Safety Report 21317370 (Version 1)
Quarter: 2022Q3

REPORT INFORMATION
  Report Type: Spontaneous
  Country: US (occurrence: US)
  Receive Date: 20220911
  Receipt Date: 20220911
  Transmission Date: 20221027
  Serious: No
  Sender: FDA-Public Use
  Company Number: US-SA-SAC20220823001250

PATIENT
  Age: 31 Year
  Sex: Female

DRUGS (3)
  1. DUPIXENT [Suspect]
     Active Substance: DUPILUMAB
     Dosage: 300 MG FREQUENCY-OTHER
     Route: 058
     Dates: start: 202202
  2. LEXAPRO [Suspect]
     Active Substance: ESCITALOPRAM OXALATE
     Dosage: UNK
  3. ATIVAN [Suspect]
     Active Substance: LORAZEPAM
     Dosage: UNK

REACTIONS (3)
  - Dizziness [Unknown]
  - Nausea [Unknown]
  - Feeling hot [Unknown]

NARRATIVE: CASE EVENT DATE: 20220805
